FAERS Safety Report 6023110-4 (Version None)
Quarter: 2008Q4

REPORT INFORMATION
  Report Type: 
  Country: None (occurrence: None)
  Receive Date: 20081223
  Receipt Date: 20081209
  Transmission Date: 20090506
  Serious: Yes (Death, Hospitalization, Other)
  Sender: FDA-Public Use
  Company Number: 55006

PATIENT
  Age: 48 Year
  Sex: Female

DRUGS (2)
  1. MITOXANTRONE [Suspect]
     Indication: RELAPSING-REMITTING MULTIPLE SCLEROSIS
     Dosage: 120MG
  2. AZATHIOPRINE SODIUM [Suspect]
     Indication: RELAPSING-REMITTING MULTIPLE SCLEROSIS
     Dosage: 150MG/DAY

REACTIONS (3)
  - ACUTE GRAFT VERSUS HOST DISEASE IN INTESTINE [None]
  - ACUTE MYELOID LEUKAEMIA [None]
  - PANCYTOPENIA [None]
